FAERS Safety Report 4396462-9 (Version None)
Quarter: 2004Q2

REPORT INFORMATION
  Report Type: 
  Country: None (occurrence: None)
  Receive Date: 20040621
  Receipt Date: 20031120
  Transmission Date: 20050107
  Serious: Yes (Death)
  Sender: FDA-Public Use
  Company Number: USA-2003-0011218

PATIENT
  Age: 22 Year
  Sex: Male

DRUGS (5)
  1. OXYCONTIN [Suspect]
  2. PERCOCET [Suspect]
  3. VICODIN [Suspect]
  4. XANAX [Suspect]
  5. TUSSIONEX [Suspect]

REACTIONS (1)
  - MULTIPLE DRUG OVERDOSE [None]
